FAERS Safety Report 18014929 (Version 1)
Quarter: 2020Q3

REPORT INFORMATION
  Report Type: Spontaneous
  Country: US (occurrence: US)
  Receive Date: 20200713
  Receipt Date: 20200713
  Transmission Date: 20201103
  Serious: No
  Sender: FDA-Public Use
  Company Number: US-TEVA-2020-US-1799682

PATIENT
  Age: 8 Year
  Sex: Male

DRUGS (1)
  1. QVAR REDIHALER [Suspect]
     Active Substance: BECLOMETHASONE DIPROPIONATE
     Dosage: 2 PUFFS TWICE A DAY
     Route: 055
     Dates: start: 202001

REACTIONS (3)
  - Drug ineffective [Unknown]
  - Weight gain poor [Unknown]
  - Therapy non-responder [Unknown]
